FAERS Safety Report 4374332-X (Version None)
Quarter: 2004Q2

REPORT INFORMATION
  Report Type: 
  Country: None (occurrence: None)
  Receive Date: 20040608
  Receipt Date: 20040608
  Transmission Date: 20050107
  Serious: Yes (Life-Threatening, Disabling)
  Sender: FDA-Public Use
  Company Number: None

PATIENT
  Age: 41 Year
  Sex: Male
  Weight: 79.3795 kg

DRUGS (2)
  1. EFFEXOR XR [Suspect]
     Indication: DEPRESSION
     Dosage: 75-150MG  1 A DAY ORAL
     Route: 048
     Dates: start: 20020101, end: 20020425
  2. EFFEXOR XR [Suspect]
     Indication: GENERALISED ANXIETY DISORDER
     Dosage: 75-150MG  1 A DAY ORAL
     Route: 048
     Dates: start: 20020101, end: 20020425

REACTIONS (14)
  - ABNORMAL DREAMS [None]
  - DEPRESSION [None]
  - DISTURBANCE IN ATTENTION [None]
  - DRUG WITHDRAWAL SYNDROME [None]
  - ERECTILE DYSFUNCTION [None]
  - FEAR [None]
  - FEELING ABNORMAL [None]
  - JUDGEMENT IMPAIRED [None]
  - MOVEMENT DISORDER [None]
  - NERVOUS SYSTEM DISORDER [None]
  - PANIC ATTACK [None]
  - RELATIONSHIP BREAKDOWN [None]
  - SEXUAL DYSFUNCTION [None]
  - SUICIDAL IDEATION [None]
